APPROVED DRUG PRODUCT: OPTIRAY 320
Active Ingredient: IOVERSOL
Strength: 68%
Dosage Form/Route: INJECTABLE;INJECTION
Application: N020923 | Product #002
Applicant: LIEBEL-FLARSHEIM CO LLC
Approved: May 29, 1998 | RLD: Yes | RS: Yes | Type: RX